FAERS Safety Report 7247498-1 (Version None)
Quarter: 2011Q1

REPORT INFORMATION
  Report Type: 
  Country: None (occurrence: None)
  Receive Date: 20110127
  Receipt Date: 20110120
  Transmission Date: 20110831
  Serious: Yes (Life-Threatening, Hospitalization)
  Sender: FDA-Public Use
  Company Number: GB-BRISTOL-MYERS SQUIBB COMPANY-15159056

PATIENT
  Age: 28 Year
  Sex: Male
  Weight: 76 kg

DRUGS (8)
  1. ONDANSETRON [Concomitant]
     Dates: start: 20091229, end: 20100102
  2. BLEOMYCIN SULFATE [Suspect]
     Indication: CHEMOTHERAPY
     Route: 042
     Dates: start: 20091230, end: 20091230
  3. APREPITANT [Concomitant]
     Dates: start: 20091229, end: 20091231
  4. CISPLATIN [Suspect]
     Indication: CHEMOTHERAPY
     Dosage: RECEIVED FROM 29DEC09-30DEC09. AGAIN FROM JAN-2010
     Route: 042
     Dates: start: 20091229, end: 20091230
  5. DEXAMETHASONE [Concomitant]
     Dates: start: 20091229, end: 20100102
  6. NEULASTA [Suspect]
     Indication: PROPHYLAXIS
     Route: 058
     Dates: start: 20100106, end: 20100101
  7. ETOPOSIDE [Suspect]
     Indication: CHEMOTHERAPY
     Dosage: RECEIVED FROM 29DEC09-31DEC09. AGAIN FROM JAN-2010
     Route: 042
     Dates: start: 20091229, end: 20091231
  8. METOCLOPRAMIDE [Concomitant]
     Route: 048
     Dates: start: 20091229

REACTIONS (2)
  - FEBRILE NEUTROPENIA [None]
  - FACIAL PAIN [None]
